FAERS Safety Report 10477338 (Version 1)
Quarter: 2014Q3

REPORT INFORMATION
  Report Type: Spontaneous
  Country: CA (occurrence: None)
  Receive Date: 20140923
  Receipt Date: 20140923
  Transmission Date: 20150326
  Serious: Yes (Hospitalization)
  Sender: FDA-Public Use
  Company Number: 2014JUB00124

PATIENT
  Age: 84 Year
  Sex: Male

DRUGS (9)
  1. METFORMIN [Concomitant]
     Active Substance: METFORMIN HYDROCHLORIDE
  2. PANTOPRAZOLE [Suspect]
     Active Substance: PANTOPRAZOLE SODIUM
     Indication: GASTROOESOPHAGEAL REFLUX DISEASE
  3. METOPROLOL [Concomitant]
     Active Substance: METOPROLOL
  4. HYDROCHLOROTHIAZIDE (HYDROCHLOROTHIAZIDE) UNKNOWN [Suspect]
     Active Substance: HYDROCHLOROTHIAZIDE
  5. TAMSULOSIN [Concomitant]
     Active Substance: TAMSULOSIN
  6. FINASTERIDE. [Concomitant]
     Active Substance: FINASTERIDE
  7. AMLODIPINE [Concomitant]
     Active Substance: AMLODIPINE BESYLATE
  8. ASPIRIN (ACETYLSALICYLIC ACID) [Concomitant]
     Active Substance: ASPIRIN
  9. ATORVASTATIN [Concomitant]
     Active Substance: ATORVASTATIN

REACTIONS (9)
  - Hypomagnesaemia [None]
  - Chondrocalcinosis [None]
  - Diarrhoea [None]
  - Fatigue [None]
  - Muscle spasms [None]
  - Hypocalcaemia [None]
  - Orthostatic hypotension [None]
  - Depressed mood [None]
  - Tremor [None]
